FAERS Safety Report 14557468 (Version 3)
Quarter: 2018Q2

REPORT INFORMATION
  Report Type: Spontaneous
  Country: PL (occurrence: PL)
  Receive Date: 20180221
  Receipt Date: 20180511
  Transmission Date: 20180711
  Serious: Yes (Other)
  Sender: FDA-Public Use
  Company Number: PL-PFIZER INC-2018068323

PATIENT
  Age: 55 Year
  Sex: Female

DRUGS (13)
  1. DEXAMETHASONE. [Suspect]
     Active Substance: DEXAMETHASONE
     Dosage: UNK (6 CTD CYCLES)
     Route: 065
     Dates: start: 2011
  2. THALIDOMIDE [Suspect]
     Active Substance: THALIDOMIDE
     Indication: PLASMA CELL MYELOMA
     Dosage: UNK (6 CTD CYCLES)
     Route: 048
     Dates: start: 2011
  3. DEXAMETHASONE. [Suspect]
     Active Substance: DEXAMETHASONE
     Dosage: UNK (8 CYCLES ALONG WITH LENALIDOMIDE)
     Route: 065
  4. VINCRISTINE [Suspect]
     Active Substance: VINCRISTINE
     Indication: PLASMA CELL MYELOMA
     Dosage: UNK (VAD REGIMEN)
     Route: 065
     Dates: start: 2007
  5. BORTEZOMIB HOSPIRA [Suspect]
     Active Substance: BORTEZOMIB
     Dosage: UNK (PAD REGIMEN)
     Route: 065
  6. BORTEZOMIB HOSPIRA [Suspect]
     Active Substance: BORTEZOMIB
     Dosage: UNK (PAD REGIMEN)
     Route: 065
  7. DEXAMETHASONE. [Suspect]
     Active Substance: DEXAMETHASONE
     Dosage: UNK (PAD REGIMEN)
     Route: 065
  8. LENALIDOMIDE [Suspect]
     Active Substance: LENALIDOMIDE
     Indication: PLASMA CELL MYELOMA
     Dosage: UNK (8 CYCLES)
     Route: 048
  9. DEXAMETHASONE. [Suspect]
     Active Substance: DEXAMETHASONE
     Indication: PLASMA CELL MYELOMA
     Dosage: UNK (VAD REGIMEN)
     Route: 065
     Dates: start: 2007
  10. CYCLOPHOSPHAMIDE. [Suspect]
     Active Substance: CYCLOPHOSPHAMIDE
     Indication: PLASMA CELL MYELOMA
     Dosage: UNK (6 CTD CYCLES)
  11. DOXORUBICIN HCL [Suspect]
     Active Substance: DOXORUBICIN HYDROCHLORIDE
     Indication: PLASMA CELL MYELOMA
     Dosage: UNK (VAD REGIMEN)
     Route: 065
     Dates: start: 2007
  12. DOXORUBICIN HCL [Suspect]
     Active Substance: DOXORUBICIN HYDROCHLORIDE
     Dosage: UNK (PAD REGIMEN)
     Route: 065
  13. MELPHALAN. [Suspect]
     Active Substance: MELPHALAN
     Indication: PLASMA CELL MYELOMA
     Dosage: 200 MG/M2, (HIGH DOSE CONSOLIDATION CHEMOTHERAPY)
     Route: 065

REACTIONS (2)
  - Refractory cytopenia with multilineage dysplasia [Not Recovered/Not Resolved]
  - Second primary malignancy [Not Recovered/Not Resolved]
